FAERS Safety Report 9240928 (Version 1)
Quarter: 2013Q2

REPORT INFORMATION
  Report Type: Spontaneous
  Country: US (occurrence: US)
  Receive Date: 20130419
  Receipt Date: 20130419
  Transmission Date: 20140414
  Serious: No
  Sender: FDA-Public Use
  Company Number: US-TEVA-398355USA

PATIENT
  Age: 50 Year
  Sex: Female

DRUGS (3)
  1. NUVIGIL [Suspect]
     Route: 048
  2. LAMICTAL [Concomitant]
  3. CELEXA [Concomitant]

REACTIONS (2)
  - Dry mouth [Unknown]
  - Mouth ulceration [Unknown]
